FAERS Safety Report 15663432 (Version 1)
Quarter: 2018Q4

REPORT INFORMATION
  Report Type: Spontaneous
  Country: PK (occurrence: PK)
  Receive Date: 20181128
  Receipt Date: 20181128
  Transmission Date: 20190205
  Serious: Yes (Other)
  Sender: FDA-Public Use
  Company Number: PK-STRIDES ARCOLAB LIMITED-2018SP010035

PATIENT
  Sex: Male

DRUGS (1)
  1. PROMETHAZINE HYDROCHLORIDE. [Suspect]
     Active Substance: PROMETHAZINE HYDROCHLORIDE
     Indication: PRODUCT USED FOR UNKNOWN INDICATION
     Dosage: UNK, SYRUP
     Route: 048

REACTIONS (8)
  - Intentional self-injury [Recovered/Resolved]
  - Intentional product misuse [Unknown]
  - Dyskinesia [Recovered/Resolved]
  - Cognitive disorder [Recovered/Resolved]
  - Aphasia [Recovered/Resolved]
  - Aggression [Recovered/Resolved]
  - Intellectual disability [Recovered/Resolved]
  - Overdose [Unknown]
